FAERS Safety Report 9664389 (Version 1)
Quarter: 2013Q4

REPORT INFORMATION
  Report Type: Spontaneous
  Country: US (occurrence: None)
  Receive Date: 20131030
  Receipt Date: 20131030
  Transmission Date: 20140711
  Serious: Yes (Hospitalization)
  Sender: FDA-Public Use
  Company Number: None

PATIENT
  Age: 79 Year
  Sex: Female
  Weight: 83.9 kg

DRUGS (13)
  1. PRADAXA [Suspect]
     Indication: ATRIAL FIBRILLATION
     Route: 048
     Dates: start: 201211, end: 20130902
  2. ACETOMINOPHEN [Concomitant]
  3. ASPRIN [Concomitant]
  4. CRESTOR [Concomitant]
  5. DOXEPIN [Concomitant]
  6. HYDROCHLOROTHIAZIDE [Concomitant]
  7. HYDROCODONE/APAP [Concomitant]
  8. IMODIUM AD [Concomitant]
  9. LISINOPRIL [Concomitant]
  10. MULTIVITAMINS WITH MINERALS [Concomitant]
  11. OMEGA 3 FISH OIL [Concomitant]
  12. PROBIOTIC [Concomitant]
  13. SOTALOL [Concomitant]

REACTIONS (2)
  - Gastrointestinal haemorrhage [None]
  - Haemoglobin decreased [None]
